FAERS Safety Report 6684555-2 (Version None)
Quarter: 2010Q2

REPORT INFORMATION
  Report Type: 
  Country: None (occurrence: None)
  Receive Date: 20100416
  Receipt Date: 20100412
  Transmission Date: 20101027
  Serious: Yes (Hospitalization)
  Sender: FDA-Public Use
  Company Number: FR-ROCHE-696545

PATIENT
  Sex: Male

DRUGS (5)
  1. ROCEPHIN [Suspect]
     Route: 042
     Dates: start: 20091127, end: 20091218
  2. OFLOCET [Concomitant]
     Dosage: STRENGTH: 200 MG/ 40 ML; FORM: INFUSION
     Route: 042
     Dates: start: 20091130, end: 20091226
  3. VANCOMYCIN HCL [Concomitant]
     Route: 042
     Dates: start: 20091203, end: 20091222
  4. AMIKIN [Concomitant]
     Route: 042
     Dates: start: 20091203, end: 20091208
  5. GENTAMICIN [Concomitant]
     Dosage: DRUG REPORTED AS GENTAMYCINE
     Dates: start: 20091127, end: 20091130

REACTIONS (2)
  - DRUG RASH WITH EOSINOPHILIA AND SYSTEMIC SYMPTOMS [None]
  - SKIN TEST POSITIVE [None]
